FAERS Safety Report 12849324 (Version 1)
Quarter: 2016Q4

REPORT INFORMATION
  Report Type: Spontaneous
  Country: KP (occurrence: KP)
  Receive Date: 20161014
  Receipt Date: 20161014
  Transmission Date: 20170207
  Serious: Yes (Other)
  Sender: FDA-Public Use
  Company Number: KP-MEDA-2016100002

PATIENT
  Age: 39 Year
  Sex: Male

DRUGS (2)
  1. COLYTE [Suspect]
     Active Substance: POLYETHYLENE GLYCOL 3350\POTASSIUM CHLORIDE\SODIUM BICARBONATE\SODIUM CHLORIDE\SODIUM SULFATE ANHYDROUS
     Indication: COLONOSCOPY
     Route: 048
     Dates: start: 2013
  2. SUPRAX [Concomitant]
     Active Substance: CEFIXIME
     Indication: DIVERTICULITIS
     Dates: start: 2013

REACTIONS (2)
  - Anaphylactic reaction [Unknown]
  - Loss of consciousness [Recovered/Resolved]

NARRATIVE: CASE EVENT DATE: 2013
